FAERS Safety Report 9196539 (Version 1)
Quarter: 2013Q1

REPORT INFORMATION
  Report Type: Spontaneous
  Country: US (occurrence: None)
  Receive Date: 20120709
  Receipt Date: 20120709
  Transmission Date: 20140127
  Serious: Yes (Other)
  Sender: FDA-Public Use
  Company Number: PHHY2011US52897

PATIENT
  Age: 49 Year
  Sex: Female

DRUGS (4)
  1. GLEEVEC (IMATINIB) [Suspect]
     Dosage: 400 MG TABLET AND TWO 100 MG TABLETS
     Route: 048
  2. DEPAKOTE (VALPROATE SEMISODIUM) [Concomitant]
  3. TEGRETOL (CARBAMAZEPINE) UNKNOWN [Concomitant]
  4. LAMACITAL ^BURROUGHS WELLCOME^ (LAMOTRIGINE) [Concomitant]

REACTIONS (5)
  - Convulsion [None]
  - Syncope [None]
  - Hyponatraemia [None]
  - Hypokalaemia [None]
  - Stomatitis [None]
